FAERS Safety Report 26049191 (Version 1)
Quarter: 2025Q4

REPORT INFORMATION
  Report Type: Spontaneous
  Country: EU (occurrence: EU)
  Receive Date: 20251115
  Receipt Date: 20251115
  Transmission Date: 20260117
  Serious: Yes (Hospitalization, Other)
  Sender: NOVARTIS
  Company Number: EU-002147023-NVSC2025DE174005

PATIENT
  Age: 77 Year
  Sex: Female

DRUGS (1)
  1. MIDOSTAURIN [Suspect]
     Active Substance: MIDOSTAURIN
     Indication: Advanced systemic mastocytosis
     Dosage: 150 MG, QD
     Route: 065

REACTIONS (10)
  - Withdrawal syndrome [Unknown]
  - Fatigue [Unknown]
  - Pleural effusion [Unknown]
  - Oedema [Unknown]
  - Diarrhoea [Unknown]
  - Dyspnoea [Unknown]
  - Flushing [Unknown]
  - Advanced systemic mastocytosis [Unknown]
  - Malignant neoplasm progression [Unknown]
  - Pyoderma gangrenosum [Recovered/Resolved]
